FAERS Safety Report 15622844 (Version 1)
Quarter: 2018Q4

REPORT INFORMATION
  Report Type: Spontaneous
  Country: PL (occurrence: PL)
  Receive Date: 20181115
  Receipt Date: 20181115
  Transmission Date: 20190205
  Serious: Yes (Hospitalization, Other)
  Sender: FDA-Public Use
  Company Number: PL-009507513-1811POL006131

PATIENT
  Age: 77 Year
  Sex: Female
  Weight: 88 kg

DRUGS (8)
  1. RIBAVIRIN. [Suspect]
     Active Substance: RIBAVIRIN
     Dosage: 800 AT 4 WEEKS
     Route: 065
  2. PREDUCTAL [Concomitant]
     Active Substance: TRIMETAZIDINE DIHYDROCHLORIDE
     Dosage: UNK
  3. NEBILET [Concomitant]
     Active Substance: NEBIVOLOL
     Dosage: UNK
  4. TIALORID [Concomitant]
     Dosage: UNK
  5. RIBAVIRIN. [Suspect]
     Active Substance: RIBAVIRIN
     Indication: CHRONIC HEPATITIS C
     Dosage: 1000 UNK
     Route: 065
  6. HARVONI [Suspect]
     Active Substance: LEDIPASVIR\SOFOSBUVIR
     Dosage: UNK
  7. ASPARTIC ACID [Concomitant]
     Active Substance: ASPARTIC ACID
     Dosage: UNK
  8. SOFOSBUVIR [Suspect]
     Active Substance: SOFOSBUVIR
     Indication: CHRONIC HEPATITIS C
     Dosage: UNK
     Route: 065

REACTIONS (1)
  - Syncope [Unknown]
